FAERS Safety Report 18409621 (Version 1)
Quarter: 2020Q4

REPORT INFORMATION
  Report Type: Report from Study
  Country: None (occurrence: US)
  Receive Date: 20201021
  Receipt Date: 20201021
  Transmission Date: 20210114
  Serious: Yes (Death)
  Sender: FDA-Public Use
  Company Number: US-ABBVIE-20K-163-3618063-00

PATIENT
  Age: 86 Year
  Sex: Male

DRUGS (1)
  1. VENCLEXTA [Suspect]
     Active Substance: VENETOCLAX
     Indication: ACUTE LEUKAEMIA
     Dosage: TAKE 4 TABLETS BY MOUTH ONCE DAILY
     Route: 048
     Dates: end: 2020

REACTIONS (1)
  - Death [Fatal]

NARRATIVE: CASE EVENT DATE: 20200902
